FAERS Safety Report 22636948 (Version 1)
Quarter: 2023Q2

REPORT INFORMATION
  Report Type: Spontaneous
  Country: JP (occurrence: JP)
  Receive Date: 20230626
  Receipt Date: 20230626
  Transmission Date: 20230722
  Serious: Yes (Other)
  Sender: FDA-Public Use
  Company Number: JP-BAYER-2023A083120

PATIENT
  Age: 77 Year
  Sex: Female

DRUGS (2)
  1. IOPAMIRON [Suspect]
     Active Substance: IOPAMIDOL
     Indication: Diagnostic procedure
     Dosage: 70 ML, ONCE
     Route: 042
  2. IOPAMIRON [Suspect]
     Active Substance: IOPAMIDOL
     Dosage: 70 ML, ONCE
     Route: 042

REACTIONS (1)
  - Cerebral aneurysm perforation [Unknown]
